FAERS Safety Report 7599348-1 (Version None)
Quarter: 2011Q3

REPORT INFORMATION
  Report Type: 
  Country: None (occurrence: None)
  Receive Date: 20110711
  Receipt Date: 20101210
  Transmission Date: 20111222
  Serious: Yes (Death, Hospitalization, Other)
  Sender: FDA-Public Use
  Company Number: US-BAYER-201011356NA

PATIENT
  Sex: Male
  Weight: 83.9 kg

DRUGS (13)
  1. ARICEPT [Concomitant]
     Dosage: 5 MG, HS
     Route: 048
  2. NIASPAN [Concomitant]
     Dosage: 1000 MG, HS
     Route: 048
  3. PLAVIX [Concomitant]
     Dosage: 75 MG, QD
     Route: 048
  4. HEPARIN [Concomitant]
     Dosage: UNK
     Route: 042
     Dates: start: 20010911
  5. PROTAMINE SULFATE [Concomitant]
     Dosage: UNK
     Route: 042
     Dates: start: 20010911
  6. LIPITOR [Concomitant]
     Dosage: 80 MG
     Route: 048
  7. KLONOPIN [Concomitant]
     Dosage: 0.25 MG, HS
     Route: 048
  8. FLONASE [Concomitant]
     Dosage: AS NEEDED
     Route: 048
  9. ROZEREM [Concomitant]
     Dosage: 8 MG, HS
     Route: 048
  10. SOLU-MEDROL [Concomitant]
     Dosage: UNK
     Route: 042
     Dates: start: 20010911
  11. ALLEGRA [Concomitant]
     Dosage: 180 MG, QD
     Route: 048
  12. TRASYLOL [Suspect]
     Indication: CORONARY ARTERY BYPASS
     Dosage: 50 CC/HR GIVEN OVER APPROX 3 HRS
     Route: 042
     Dates: start: 20010911, end: 20010911
  13. PAXIL [Concomitant]
     Dosage: 20 MG, QD
     Route: 048

REACTIONS (14)
  - CARDIAC DISORDER [None]
  - RENAL IMPAIRMENT [None]
  - RENAL FAILURE [None]
  - PAIN [None]
  - ORGAN FAILURE [None]
  - FEAR [None]
  - DEATH [None]
  - UNEVALUABLE EVENT [None]
  - ANHEDONIA [None]
  - CEREBROVASCULAR ACCIDENT [None]
  - RENAL INJURY [None]
  - ANXIETY [None]
  - DEPRESSION [None]
  - INJURY [None]
